FAERS Safety Report 6346031-6 (Version None)
Quarter: 2009Q3

REPORT INFORMATION
  Report Type: 
  Country: None (occurrence: None)
  Receive Date: 20090909
  Receipt Date: 20090225
  Transmission Date: 20100115
  Serious: Yes (Hospitalization)
  Sender: FDA-Public Use
  Company Number: DE-BRISTOL-MYERS SQUIBB COMPANY-14514780

PATIENT
  Age: 71 Year
  Sex: Male
  Weight: 79 kg

DRUGS (2)
  1. ERBITUX [Suspect]
     Indication: HEAD AND NECK CANCER
     Dosage: LOADING DOSE:400MG/M2,ONCE;26AUG08-UNK,AUG-08 TO 17-SEP-08 (1 MONTHS),A TOTAL OF 5 INF
     Route: 042
     Dates: start: 20080826
  2. RADIATION THERAPY [Suspect]
     Indication: HEAD AND NECK CANCER
     Dosage: 1 DOSAGE FORM=1.8GY, TOTAL DOSAGE 72 GY GHD
     Dates: start: 20080828, end: 20081002

REACTIONS (3)
  - DERMATITIS ACNEIFORM [None]
  - DYSPHAGIA [None]
  - MUCOSAL INFLAMMATION [None]
